APPROVED DRUG PRODUCT: LEVOFLOXACIN
Active Ingredient: LEVOFLOXACIN
Strength: 750MG
Dosage Form/Route: TABLET;ORAL
Application: A201043 | Product #003 | TE Code: AB
Applicant: AUROBINDO PHARMA LIMITED
Approved: Jun 20, 2011 | RLD: No | RS: Yes | Type: RX